FAERS Safety Report 7355685-7 (Version None)
Quarter: 2011Q1

REPORT INFORMATION
  Report Type: 
  Country: None (occurrence: None)
  Receive Date: 20110316
  Receipt Date: 20110309
  Transmission Date: 20110831
  Serious: Yes (Other)
  Sender: FDA-Public Use
  Company Number: SE-AMGEN-SWESP2011013684

PATIENT
  Age: 54 Year
  Sex: Female

DRUGS (2)
  1. BRUFEN                             /00109201/ [Concomitant]
     Indication: PAIN
     Dosage: AS NEEDED
  2. ENBREL [Suspect]
     Indication: RHEUMATOID ARTHRITIS
     Dosage: 25 MG, WEEKLY
     Dates: start: 20010101

REACTIONS (2)
  - HYPERTENSION [None]
  - HERPES VIRUS INFECTION [None]
